FAERS Safety Report 15260139 (Version 1)
Quarter: 2018Q3

REPORT INFORMATION
  Report Type: Spontaneous
  Country: US (occurrence: US)
  Receive Date: 20180719
  Receipt Date: 20180719
  Transmission Date: 20181010
  Serious: No
  Sender: FDA-Public Use
  Company Number: None

PATIENT
  Age: 54 Year
  Sex: Male
  Weight: 72.57 kg

DRUGS (1)
  1. VENOFER [Suspect]
     Active Substance: IRON SUCROSE
     Indication: IRON DEFICIENCY ANAEMIA
     Dosage: 200MG = TWO 100MG 72 HOURS 5 MINUTE IV PUSH
     Route: 042
     Dates: start: 20180121, end: 20180130

REACTIONS (2)
  - Chromaturia [None]
  - Product quality issue [None]
